FAERS Safety Report 25098435 (Version 1)
Quarter: 2025Q1

REPORT INFORMATION
  Report Type: Other
  Country: AU (occurrence: AU)
  Receive Date: 20250320
  Receipt Date: 20250320
  Transmission Date: 20250409
  Serious: Yes (Other)
  Sender: BIOCON
  Company Number: AU-BIOCON BIOLOGICS LIMITED-BBL2025001264

PATIENT

DRUGS (7)
  1. ADALIMUMAB [Suspect]
     Active Substance: ADALIMUMAB
     Indication: Product used for unknown indication
     Route: 065
  2. DAIVOBET [Suspect]
     Active Substance: BETAMETHASONE DIPROPIONATE\CALCIPOTRIENE
     Indication: Product used for unknown indication
     Route: 065
  3. SECUKINUMAB [Suspect]
     Active Substance: SECUKINUMAB
     Indication: Product used for unknown indication
     Route: 065
  4. ACITRETIN [Suspect]
     Active Substance: ACITRETIN
     Indication: Product used for unknown indication
     Route: 065
  5. CELECOXIB [Suspect]
     Active Substance: CELECOXIB
     Indication: Product used for unknown indication
     Route: 065
  6. CYCLOSPORINE [Suspect]
     Active Substance: CYCLOSPORINE
     Indication: Product used for unknown indication
     Route: 065
  7. METHOTREXATE [Suspect]
     Active Substance: METHOTREXATE
     Indication: Product used for unknown indication
     Route: 065

REACTIONS (18)
  - Colitis [Unknown]
  - Crohn^s disease [Unknown]
  - Ileal ulcer [Unknown]
  - Psoriatic arthropathy [Unknown]
  - Condition aggravated [Unknown]
  - Dactylitis [Unknown]
  - Genital ulceration [Unknown]
  - Joint effusion [Unknown]
  - Mouth ulceration [Unknown]
  - Tongue ulceration [Unknown]
  - Vaginal discharge [Unknown]
  - Vulval disorder [Unknown]
  - Vulvovaginal erythema [Unknown]
  - Vulvovaginal swelling [Unknown]
  - Diarrhoea [Unknown]
  - Psoriasis [Unknown]
  - Vulvovaginal candidiasis [Unknown]
  - COVID-19 [Unknown]
